FAERS Safety Report 9777643 (Version 3)
Quarter: 2014Q1

REPORT INFORMATION
  Report Type: Spontaneous
  Country: IT (occurrence: IT)
  Receive Date: 20131223
  Receipt Date: 20140204
  Transmission Date: 20141002
  Serious: Yes (Hospitalization)
  Sender: FDA-Public Use
  Company Number: IT-TEVA-450860ISR

PATIENT
  Age: 70 Year
  Sex: Female

DRUGS (5)
  1. GABAPENTIN [Suspect]
     Indication: SUICIDE ATTEMPT
     Route: 048
     Dates: start: 20131108, end: 20131108
  2. RISEDRONATE SODIUM [Suspect]
     Indication: SUICIDE ATTEMPT
     Route: 048
     Dates: start: 20131108, end: 20131108
  3. ACETAMOL - ADULTI 500 MG COMPRESSE - ABIOGEN PHARMA S.P. A. [Suspect]
     Indication: SUICIDE ATTEMPT
     Route: 048
     Dates: start: 20131108, end: 20131108
  4. PALEXIA -100 MG COMPRESSE A RILASCIO PROLUNGATO-GRUNENTHAL ITALIA [Suspect]
     Indication: SUICIDE ATTEMPT
     Route: 048
     Dates: start: 20131108, end: 20131108
  5. PATROL -37,5 MG + 325 MG COMPRESSE RIVESTITE CON FILM -ALFA WASSERMANN [Suspect]
     Indication: SUICIDE ATTEMPT
     Route: 048
     Dates: start: 20131108, end: 20131108

REACTIONS (2)
  - Confusional state [Recovered/Resolved]
  - Drug abuse [Recovered/Resolved]
